FAERS Safety Report 9242965 (Version 2)
Quarter: 2013Q2

REPORT INFORMATION
  Report Type: Spontaneous
  Country: US (occurrence: US)
  Receive Date: 20130419
  Receipt Date: 20130522
  Transmission Date: 20140414
  Serious: Yes (Hospitalization)
  Sender: FDA-Public Use
  Company Number: US-B.I. PHARMACEUTICALS,INC./RIDGEFIELD-2013-BI-09894BP

PATIENT
  Age: 85 Year
  Sex: Female
  Weight: 47 kg

DRUGS (7)
  1. PRADAXA [Suspect]
     Indication: ATRIAL FIBRILLATION
     Dosage: 300 MG
     Route: 048
     Dates: start: 20110630, end: 20130228
  2. PRADAXA [Suspect]
     Indication: ATRIAL FLUTTER
  3. MULTAQ [Concomitant]
     Indication: ATRIAL FIBRILLATION
     Dosage: 400 MG
     Dates: start: 20120628
  4. LASIX [Concomitant]
     Dosage: 40 MG
     Dates: start: 20120507
  5. KBW [Concomitant]
     Dosage: 20 MEQ
  6. LOSARTAN-HCTZ [Concomitant]
     Dosage: 50-12.5MG DAILY
     Dates: start: 20120628
  7. NORVASC [Concomitant]
     Dosage: 5 MG
     Dates: start: 20120628

REACTIONS (2)
  - Gastrointestinal haemorrhage [Recovered/Resolved]
  - Haemoglobin decreased [Recovered/Resolved]
